FAERS Safety Report 14430538 (Version 2)
Quarter: 2020Q3

REPORT INFORMATION
  Report Type: Report from Study
  Country: TW (occurrence: TW)
  Receive Date: 20180124
  Receipt Date: 20180301
  Transmission Date: 20201105
  Serious: Yes (Hospitalization)
  Sender: FDA-Public Use
  Company Number: TW-ASTRAZENECA-2018SE07697

PATIENT
  Age: 25034 Day
  Sex: Male

DRUGS (37)
  1. ETOPOSIDE. [Suspect]
     Active Substance: ETOPOSIDE
     Indication: SMALL CELL LUNG CANCER
     Dosage: 148 MG/M2
     Route: 065
     Dates: start: 20170725, end: 20170725
  2. ETOPOSIDE. [Suspect]
     Active Substance: ETOPOSIDE
     Indication: SMALL CELL LUNG CANCER
     Dosage: 148 MG/M2
     Route: 065
     Dates: start: 20170727, end: 20170727
  3. ETOPOSIDE. [Suspect]
     Active Substance: ETOPOSIDE
     Indication: SMALL CELL LUNG CANCER
     Dosage: 148 MG/M2
     Route: 065
     Dates: start: 20170919, end: 20170919
  4. ETOPOSIDE. [Suspect]
     Active Substance: ETOPOSIDE
     Indication: SMALL CELL LUNG CANCER
     Dosage: 148 MG/M2
     Route: 065
     Dates: start: 20170921, end: 20170921
  5. MEDI4736 [Suspect]
     Active Substance: DURVALUMAB
     Indication: SMALL CELL LUNG CANCER
     Route: 042
     Dates: start: 20171018, end: 20171018
  6. GLUCOPHAGE [Concomitant]
     Active Substance: METFORMIN HYDROCHLORIDE
     Indication: DIABETES MELLITUS
     Route: 048
     Dates: start: 200107
  7. ETOPOSIDE. [Suspect]
     Active Substance: ETOPOSIDE
     Indication: SMALL CELL LUNG CANCER
     Dosage: 148 MG/M2
     Route: 065
     Dates: start: 20170920, end: 20170920
  8. ETOPOSIDE. [Suspect]
     Active Substance: ETOPOSIDE
     Indication: SMALL CELL LUNG CANCER
     Dosage: 150.4 MG/M2
     Route: 065
     Dates: start: 20171018, end: 20171018
  9. CARBOPLATIN. [Suspect]
     Active Substance: CARBOPLATIN
     Indication: SMALL CELL LUNG CANCER
     Dosage: 5 AUC
     Route: 065
     Dates: start: 20171018, end: 20171018
  10. TREMELIMUMAB. [Suspect]
     Active Substance: TREMELIMUMAB
     Indication: SMALL CELL LUNG CANCER
     Route: 042
     Dates: start: 20171220, end: 20171220
  11. ETOPOSIDE. [Suspect]
     Active Substance: ETOPOSIDE
     Indication: SMALL CELL LUNG CANCER
     Dosage: 148 MG/M2
     Route: 065
     Dates: start: 20170726, end: 20170726
  12. ETOPOSIDE. [Suspect]
     Active Substance: ETOPOSIDE
     Indication: SMALL CELL LUNG CANCER
     Dosage: 146.4 MG/M2
     Route: 065
     Dates: start: 20170824, end: 20170824
  13. TREMELIMUMAB. [Suspect]
     Active Substance: TREMELIMUMAB
     Indication: SMALL CELL LUNG CANCER
     Route: 042
     Dates: start: 20170725, end: 20170725
  14. ULTRACET [Concomitant]
     Active Substance: ACETAMINOPHEN\TRAMADOL HYDROCHLORIDE
     Indication: BACK PAIN
     Route: 048
     Dates: start: 20070712
  15. GALVUS [Concomitant]
     Active Substance: VILDAGLIPTIN
     Indication: DIABETES MELLITUS
     Route: 048
     Dates: start: 200107
  16. PIOGLITAZONE. [Concomitant]
     Active Substance: PIOGLITAZONE
     Indication: DIABETES MELLITUS
     Route: 048
     Dates: start: 200107
  17. ETOPOSIDE. [Suspect]
     Active Substance: ETOPOSIDE
     Indication: SMALL CELL LUNG CANCER
     Dosage: 146.4 MG/M2
     Route: 065
     Dates: start: 20170823, end: 20170823
  18. CARBOPLATIN. [Suspect]
     Active Substance: CARBOPLATIN
     Indication: SMALL CELL LUNG CANCER
     Dosage: 5 AUC
     Route: 065
     Dates: start: 20170725, end: 20170725
  19. TREMELIMUMAB. [Suspect]
     Active Substance: TREMELIMUMAB
     Indication: SMALL CELL LUNG CANCER
     Route: 042
     Dates: start: 20170822, end: 20170822
  20. ULSAFE [Concomitant]
     Indication: GASTRITIS
     Route: 048
     Dates: start: 20170714
  21. MEDI4736 [Suspect]
     Active Substance: DURVALUMAB
     Indication: SMALL CELL LUNG CANCER
     Route: 042
     Dates: start: 20170725, end: 20170725
  22. MEDI4736 [Suspect]
     Active Substance: DURVALUMAB
     Indication: SMALL CELL LUNG CANCER
     Route: 042
     Dates: start: 20171220, end: 20171220
  23. MOSAPRIDE [Concomitant]
     Active Substance: MOSAPRIDE
     Indication: GASTRITIS
     Route: 048
     Dates: start: 20170714
  24. BOKEY [Concomitant]
     Indication: DYSLIPIDAEMIA
     Route: 048
     Dates: start: 20070712
  25. APROVEL [Concomitant]
     Active Substance: IRBESARTAN
     Indication: HYPERTENSION
     Route: 048
     Dates: start: 201407
  26. MEDI4736 [Suspect]
     Active Substance: DURVALUMAB
     Indication: SMALL CELL LUNG CANCER
     Route: 042
     Dates: start: 20171115, end: 20171115
  27. TREMELIMUMAB. [Suspect]
     Active Substance: TREMELIMUMAB
     Indication: SMALL CELL LUNG CANCER
     Route: 042
     Dates: start: 20171018, end: 20171018
  28. ETOPOSIDE. [Suspect]
     Active Substance: ETOPOSIDE
     Indication: SMALL CELL LUNG CANCER
     Dosage: 150.4 MG/M2
     Route: 065
     Dates: start: 20171019, end: 20171019
  29. MEDI4736 [Suspect]
     Active Substance: DURVALUMAB
     Indication: SMALL CELL LUNG CANCER
     Route: 042
     Dates: start: 20170919, end: 20170919
  30. ETOPOSIDE. [Suspect]
     Active Substance: ETOPOSIDE
     Indication: SMALL CELL LUNG CANCER
     Dosage: 146.4 MG/M2
     Route: 065
     Dates: start: 20170822, end: 20170822
  31. ETOPOSIDE. [Suspect]
     Active Substance: ETOPOSIDE
     Indication: SMALL CELL LUNG CANCER
     Dosage: 148 MG/M2
     Route: 065
     Dates: start: 20170921, end: 20170921
  32. ETOPOSIDE. [Suspect]
     Active Substance: ETOPOSIDE
     Indication: SMALL CELL LUNG CANCER
     Dosage: 150.4 MG/M2
     Route: 065
     Dates: start: 20171020, end: 20171020
  33. CARBOPLATIN. [Suspect]
     Active Substance: CARBOPLATIN
     Indication: SMALL CELL LUNG CANCER
     Dosage: 5 AUC
     Route: 065
     Dates: start: 20170822, end: 20170822
  34. CARBOPLATIN. [Suspect]
     Active Substance: CARBOPLATIN
     Indication: SMALL CELL LUNG CANCER
     Dosage: 5 AUC
     Route: 065
     Dates: start: 20170919, end: 20170919
  35. MEDI4736 [Suspect]
     Active Substance: DURVALUMAB
     Indication: SMALL CELL LUNG CANCER
     Route: 042
     Dates: start: 20170822, end: 20170822
  36. TREMELIMUMAB. [Suspect]
     Active Substance: TREMELIMUMAB
     Indication: SMALL CELL LUNG CANCER
     Route: 042
     Dates: start: 20170919, end: 20170919
  37. CRESTOR [Concomitant]
     Active Substance: ROSUVASTATIN CALCIUM
     Indication: DYSLIPIDAEMIA
     Route: 048
     Dates: start: 201407

REACTIONS (1)
  - Encephalopathy [Not Recovered/Not Resolved]

NARRATIVE: CASE EVENT DATE: 20180110
